FAERS Safety Report 4376962-8 (Version None)
Quarter: 2004Q2

REPORT INFORMATION
  Report Type: 
  Country: None (occurrence: None)
  Receive Date: 20040614
  Receipt Date: 20031203
  Transmission Date: 20050107
  Serious: Yes (Hospitalization)
  Sender: FDA-Public Use
  Company Number: US-AMGEN-US060025

PATIENT
  Sex: Female

DRUGS (10)
  1. KINERET [Suspect]
     Indication: RHEUMATOID ARTHRITIS
     Route: 058
     Dates: start: 20031111, end: 20031116
  2. PREDNISONE [Suspect]
     Route: 048
     Dates: start: 20020710
  3. ENBREL [Suspect]
     Indication: RHEUMATOID ARTHRITIS
     Route: 058
     Dates: start: 20030409, end: 20031016
  4. PLAQUENIL [Concomitant]
     Dates: start: 20010101
  5. DIOVAN [Concomitant]
     Dates: start: 19990101
  6. PRILOSEC [Concomitant]
     Dates: start: 19990101
  7. VOLTAREN [Concomitant]
     Dates: start: 20030601
  8. PROZAC [Concomitant]
     Dates: start: 20030601
  9. BEXTRA [Concomitant]
  10. DOXEPIN HCL [Concomitant]

REACTIONS (3)
  - CELLULITIS [None]
  - PYODERMA [None]
  - STAPHYLOCOCCAL ABSCESS [None]
